FAERS Safety Report 4714205-3 (Version None)
Quarter: 2005Q3

REPORT INFORMATION
  Report Type: 
  Country: None (occurrence: None)
  Receive Date: 20050712
  Receipt Date: 20050630
  Transmission Date: 20060218
  Serious: Yes (Hospitalization)
  Sender: FDA-Public Use
  Company Number: DEU-2005-0001485

PATIENT
  Age: 49 Year
  Sex: Female

DRUGS (1)
  1. PALLADONE [Suspect]
     Indication: PAIN
     Dosage: 12 MG, BID; ORAL
     Route: 048

REACTIONS (3)
  - FALL [None]
  - LOSS OF CONSCIOUSNESS [None]
  - NARCOLEPSY [None]
